FAERS Safety Report 8231749-0 (Version None)
Quarter: 2012Q1

REPORT INFORMATION
  Report Type: 
  Country: None (occurrence: None)
  Receive Date: 20120323
  Receipt Date: 20120322
  Transmission Date: 20120608
  Serious: Yes (Other)
  Sender: FDA-Public Use
  Company Number: SE-ROCHE-1051448

PATIENT
  Age: 62 Year
  Sex: Female

DRUGS (12)
  1. ENTOCORT EC [Concomitant]
  2. DOCETAXEL [Concomitant]
  3. ASACOL [Concomitant]
  4. HERCEPTIN [Suspect]
     Indication: BREAST NEOPLASM
     Route: 042
     Dates: end: 20111130
  5. ELOCON [Concomitant]
  6. RISEDRONATE SODIUM [Concomitant]
  7. CYKLOFOSFAMID [Concomitant]
  8. KALCIPOS [Concomitant]
  9. DIPENTUM [Concomitant]
  10. ALVEDON [Concomitant]
  11. EPIRUBICIN [Concomitant]
  12. FLUOROURACIL [Concomitant]

REACTIONS (1)
  - TRANSAMINASES INCREASED [None]
